FAERS Safety Report 15794661 (Version 3)
Quarter: 2019Q4

REPORT INFORMATION
  Report Type: Report from Study
  Country: US (occurrence: US)
  Receive Date: 20190107
  Receipt Date: 20191113
  Transmission Date: 20200122
  Serious: No
  Sender: FDA-Public Use
  Company Number: US-SHIRE-US201900323

PATIENT
  Age: 71 Year
  Sex: Male
  Weight: 46.71 kg

DRUGS (2)
  1. TEDUGLUTIDE [Suspect]
     Active Substance: TEDUGLUTIDE
     Dosage: 0.131 MILLILITER, 1X/DAY:QDUNK
     Route: 050
  2. TEDUGLUTIDE [Suspect]
     Active Substance: TEDUGLUTIDE
     Indication: SHORT-BOWEL SYNDROME
     Dosage: 0.2430 UNITS UNKNOWN
     Route: 065
     Dates: start: 201801

REACTIONS (3)
  - Inappropriate schedule of product administration [Unknown]
  - Faeces hard [Not Recovered/Not Resolved]
  - Gastrointestinal disorder [Unknown]

NARRATIVE: CASE EVENT DATE: 20181221
